FAERS Safety Report 12598599 (Version 1)
Quarter: 2016Q3

REPORT INFORMATION
  Report Type: Spontaneous
  Country: BR (occurrence: BR)
  Receive Date: 20160727
  Receipt Date: 20160727
  Transmission Date: 20161109
  Serious: Yes (Other)
  Sender: FDA-Public Use
  Company Number: BR-GLAXOSMITHKLINE-BR2016GSK070856

PATIENT
  Sex: Female
  Weight: 85 kg

DRUGS (1)
  1. RELVAR ELLIPTA [Suspect]
     Active Substance: FLUTICASONE FUROATE\VILANTEROL TRIFENATATE
     Indication: ASTHMA
     Dosage: 2 PUFF(S), QD
     Route: 055

REACTIONS (4)
  - Premature baby [Recovered/Resolved]
  - Exposure during pregnancy [Not Recovered/Not Resolved]
  - Inappropriate schedule of drug administration [Unknown]
  - Thrombosis [Not Recovered/Not Resolved]
